FAERS Safety Report 17765980 (Version 2)
Quarter: 2020Q3

REPORT INFORMATION
  Report Type: Spontaneous
  Country: CA (occurrence: CA)
  Receive Date: 20200511
  Receipt Date: 20200513
  Transmission Date: 20201104
  Serious: Yes (Other)
  Sender: FDA-Public Use
  Company Number: CA-PFIZER INC-2020185804

PATIENT
  Age: 64 Year
  Sex: Female

DRUGS (11)
  1. BUPIVACAINE HYDROCHLORIDE. [Concomitant]
     Active Substance: BUPIVACAINE HYDROCHLORIDE
     Indication: SPINAL ANAESTHESIA
  2. FENTANYL. [Concomitant]
     Active Substance: FENTANYL
     Indication: MAINTENANCE OF ANAESTHESIA
     Dosage: UNK
  3. OXYTOCIN. [Suspect]
     Active Substance: OXYTOCIN
     Indication: UTERINE SPASM
     Dosage: UNK
  4. ERGONOVINE MALEATE. [Suspect]
     Active Substance: ERGONOVINE MALEATE
     Indication: UTERINE SPASM
     Dosage: UNK
  5. RINGER LACTATED [CALCIUM CHLORIDE\LACTIC ACID, DL?\POTASSIUM CHLORIDE\SODIUM CHLORIDE] [Concomitant]
     Active Substance: CALCIUM CHLORIDE\LACTIC ACID, DL-\POTASSIUM CHLORIDE\SODIUM CHLORIDE
     Dosage: UNK
  6. CARBOPROST TROMETAMOL [Suspect]
     Active Substance: CARBOPROST TROMETHAMINE
     Indication: UTERINE SPASM
     Dosage: UNK
  7. BUPIVACAINE HYDROCHLORIDE. [Concomitant]
     Active Substance: BUPIVACAINE HYDROCHLORIDE
     Indication: MAINTENANCE OF ANAESTHESIA
     Dosage: UNK (HYPERBARIC)
  8. FENTANYL. [Concomitant]
     Active Substance: FENTANYL
     Indication: SPINAL ANAESTHESIA
  9. MORPHINE [Concomitant]
     Active Substance: MORPHINE
     Indication: MAINTENANCE OF ANAESTHESIA
     Dosage: UNK
  10. MORPHINE [Concomitant]
     Active Substance: MORPHINE
     Indication: SPINAL ANAESTHESIA
  11. PHENYLEPHRINE [Concomitant]
     Active Substance: PHENYLEPHRINE HYDROCHLORIDE
     Dosage: UNK (INFUSION)

REACTIONS (2)
  - Postpartum haemorrhage [Unknown]
  - Drug ineffective [Recovered/Resolved]
